FAERS Safety Report 7628473-1 (Version None)
Quarter: 2011Q4

REPORT INFORMATION
  Report Type: 
  Country: None (occurrence: None)
  Receive Date: 20110705
  Receipt Date: 20110705
  Transmission Date: 20120403
  Serious: Yes (Hospitalization, Disabling, Other)
  Sender: FDA-Public Use
  Company Number: QR39765-01

PATIENT
  Age: 18 Year
  Sex: Female
  Weight: 50 kg

DRUGS (2)
  1. PREDNISOLONE [Suspect]
     Dosage: 7.5 MG
     Route: 048
  2. GAMMAPLEX [Suspect]
     Indication: IDIOPATHIC THROMBOCYTOPENIC PURPURA
     Dosage: 1000MG/KG
     Dates: start: 20100524

REACTIONS (4)
  - HEADACHE [None]
  - VOMITING [None]
  - ABDOMINAL PAIN [None]
  - PYREXIA [None]
